FAERS Safety Report 11286049 (Version 1)
Quarter: 2015Q3

REPORT INFORMATION
  Report Type: Spontaneous
  Country: US (occurrence: US)
  Receive Date: 20150721
  Receipt Date: 20150721
  Transmission Date: 20151125
  Serious: No
  Sender: FDA-Public Use
  Company Number: US-UNITED THERAPEUTICS-UNT-2015-002488

PATIENT
  Age: 62 Year
  Sex: Female
  Weight: 89.8 kg

DRUGS (3)
  1. ADCIRCA [Concomitant]
     Active Substance: TADALAFIL
     Indication: PRODUCT USED FOR UNKNOWN INDICATION
  2. ORENITRAM [Suspect]
     Active Substance: TREPROSTINIL
     Indication: PULMONARY HYPERTENSION
     Dosage: 10 MG, Q8H
     Route: 048
     Dates: start: 20150212
  3. TRACLEER [Concomitant]
     Active Substance: BOSENTAN
     Indication: PRODUCT USED FOR UNKNOWN INDICATION

REACTIONS (9)
  - Nausea [Recovering/Resolving]
  - Diarrhoea [Recovering/Resolving]
  - Pruritus [Unknown]
  - Insomnia [Unknown]
  - Unevaluable event [Unknown]
  - Fatigue [Unknown]
  - Flushing [Recovering/Resolving]
  - Headache [Recovering/Resolving]
  - Abdominal pain [Recovering/Resolving]

NARRATIVE: CASE EVENT DATE: 20150226
